FAERS Safety Report 5119767-2 (Version None)
Quarter: 2006Q4

REPORT INFORMATION
  Report Type: 
  Country: None (occurrence: None)
  Receive Date: 20061003
  Receipt Date: 20060817
  Transmission Date: 20070319
  Serious: Yes (Other)
  Sender: FDA-Public Use
  Company Number: PHFR2006GB02579

PATIENT

DRUGS (5)
  1. GLEEVEC [Suspect]
     Indication: CHRONIC MYELOID LEUKAEMIA
     Route: 065
  2. RIFABUTIN [Suspect]
     Route: 065
  3. ISONIAZID [Concomitant]
     Route: 065
  4. PYRIDOXINE HCL [Concomitant]
     Route: 065
  5. PYRAZINAMIDE [Concomitant]
     Route: 065

REACTIONS (2)
  - DRUG INTERACTION [None]
  - TUBERCULOSIS [None]
